FAERS Safety Report 5973846-6 (Version None)
Quarter: 2008Q4

REPORT INFORMATION
  Report Type: 
  Country: None (occurrence: None)
  Receive Date: 20081201
  Receipt Date: 20081119
  Transmission Date: 20090506
  Serious: Yes (Other)
  Sender: FDA-Public Use
  Company Number: JP-ROCHE-599509

PATIENT
  Age: 65 Year
  Sex: Female

DRUGS (8)
  1. XELODA [Suspect]
     Indication: BREAST CANCER
     Dosage: DRUG REPORTED AS XELODA 300
     Route: 048
  2. UFT [Suspect]
     Indication: BREAST CANCER
     Route: 048
  3. ENDOXAN [Suspect]
     Indication: BREAST CANCER
     Route: 048
  4. TAMOXIFEN CITRATE [Suspect]
     Indication: BREAST CANCER
     Route: 048
  5. FLUOROURACIL [Suspect]
     Indication: BREAST CANCER
     Route: 048
  6. FARMORUBICIN [Suspect]
     Indication: BREAST CANCER
     Dosage: DRUG REPORTED AS EPIRUBICIN HYDROCHLORIDE
     Route: 048
  7. ENDOXAN [Suspect]
     Route: 041
  8. TAXOL [Suspect]
     Indication: BREAST CANCER
     Route: 048

REACTIONS (1)
  - ACUTE MYELOID LEUKAEMIA [None]
